FAERS Safety Report 20812484 (Version 1)
Quarter: 2022Q2

REPORT INFORMATION
  Report Type: Other
  Country: CN (occurrence: None)
  Receive Date: 20220511
  Receipt Date: 20220511
  Transmission Date: 20220720
  Serious: Yes (Other)
  Sender: FDA-Public Use
  Company Number: CN-Laurus-001242

PATIENT
  Age: 64 Year
  Sex: Male

DRUGS (3)
  1. HYDROXYCHLOROQUINE [Suspect]
     Active Substance: HYDROXYCHLOROQUINE
     Indication: Porphyria non-acute
     Dosage: 2 X 100 MG, TWICE/DAY, ORAL
     Route: 048
  2. POLYMYXIN [Concomitant]
     Active Substance: POLYMYXIN
     Indication: Porphyria non-acute
     Dosage: TWICE/DAY
     Route: 061
  3. POLYMYXIN [Concomitant]
     Active Substance: POLYMYXIN
     Indication: Porphyria non-acute
     Dosage: 0.5 G/TIME
     Route: 061

REACTIONS (2)
  - Drug-induced liver injury [Recovered/Resolved]
  - Drug intolerance [Unknown]
